FAERS Safety Report 24002112 (Version 2)
Quarter: 2024Q3

REPORT INFORMATION
  Report Type: Spontaneous
  Country: JP (occurrence: JP)
  Receive Date: 20240622
  Receipt Date: 20240723
  Transmission Date: 20241017
  Serious: No
  Sender: ABBVIE
  Company Number: JP-ABBVIE-5812138

PATIENT
  Age: 80 Year
  Sex: Female

DRUGS (6)
  1. ALPHAGAN P [Suspect]
     Active Substance: BRIMONIDINE TARTRATE
     Indication: Glaucoma
     Dosage: OPHTHALMIC SOLUTION, ?DAILY DOSE: BOTH EYES?FORM STRENGTH: 0.1 PERCENT
     Route: 047
  2. RIPASUDIL HYDROCHLORIDE DIHYDRATE [Concomitant]
     Active Substance: RIPASUDIL HYDROCHLORIDE DIHYDRATE
     Indication: Glaucoma
     Dosage: OPHTHALMIC SOLUTION, BOTH EYES?FORM STRENGTH: 0.4 PERCENT
     Route: 047
  3. LUMIGAN [Suspect]
     Active Substance: BIMATOPROST
     Indication: Glaucoma
     Dosage: OPHTALMIC SOLUTION, BOTH EYES?FORM STRENGTH: 0.03 PERCENT
     Route: 047
  4. DIAMOX SEQUELS [Concomitant]
     Active Substance: ACETAZOLAMIDE
     Indication: Glaucoma
     Dosage: STRENGTH: 250 MG
     Route: 048
  5. COSOPT [Concomitant]
     Active Substance: DORZOLAMIDE HYDROCHLORIDE\TIMOLOL MALEATE
     Indication: Glaucoma
     Dosage: BOTH EYES?OPHTHALMIC SOLUTION
     Route: 047
  6. TACROLIMUS [Suspect]
     Active Substance: TACROLIMUS
     Indication: Corneal opacity
     Dosage: OPHTHALMIC SUSPENSION, BOTH EYES?FORM STRENGTH: 0.1 PERCENT
     Route: 047
     Dates: start: 20200219

REACTIONS (2)
  - Corneal opacity [Not Recovered/Not Resolved]
  - Off label use [Unknown]

NARRATIVE: CASE EVENT DATE: 20200218
